FAERS Safety Report 16104193 (Version 22)
Quarter: 2021Q2

REPORT INFORMATION
  Report Type: Spontaneous
  Country: US (occurrence: US)
  Receive Date: 20190322
  Receipt Date: 20210512
  Transmission Date: 20210716
  Serious: Yes (Hospitalization)
  Sender: FDA-Public Use
  Company Number: US-PFIZER INC-2019115234

PATIENT
  Age: 71 Year
  Sex: Female
  Weight: 56.25 kg

DRUGS (9)
  1. PREMPRO [Suspect]
     Active Substance: ESTROGENS, CONJUGATED\MEDROXYPROGESTERONE ACETATE
     Dosage: 1.25 MG, DAILY
  2. PREMPRO [Suspect]
     Active Substance: ESTROGENS, CONJUGATED\MEDROXYPROGESTERONE ACETATE
     Dosage: UNK, 2X/DAY (0.625 /2.5)
     Dates: start: 201901
  3. PREMPRO [Suspect]
     Active Substance: ESTROGENS, CONJUGATED\MEDROXYPROGESTERONE ACETATE
     Indication: HOT FLUSH
     Dosage: 1 DF, 1X/DAY
     Dates: start: 2019
  4. PREMPRO [Suspect]
     Active Substance: ESTROGENS, CONJUGATED\MEDROXYPROGESTERONE ACETATE
     Indication: AFFECTIVE DISORDER
     Dosage: 1 DF, 2X/DAY
  5. PREMPRO [Suspect]
     Active Substance: ESTROGENS, CONJUGATED\MEDROXYPROGESTERONE ACETATE
     Dosage: 0.625 MG, 2X/DAY
  6. PREMPRO [Suspect]
     Active Substance: ESTROGENS, CONJUGATED\MEDROXYPROGESTERONE ACETATE
     Dosage: 1 DF, DAILY (0.625 MG/ 2.5 MG, 1 EVERY DAY)
  7. PREMPRO [Suspect]
     Active Substance: ESTROGENS, CONJUGATED\MEDROXYPROGESTERONE ACETATE
     Dosage: .5MG /0625(WAS HIGHER THAN SHE USUALLY TOOK)
  8. PREMPRO [Suspect]
     Active Substance: ESTROGENS, CONJUGATED\MEDROXYPROGESTERONE ACETATE
     Dosage: 1 DF, DAILY (0.625?2.5 MG TABLET ONCE DAILY BY MOUTH)
     Route: 048
  9. PREMPRO [Suspect]
     Active Substance: ESTROGENS, CONJUGATED\MEDROXYPROGESTERONE ACETATE
     Dosage: 2 DF (0.625MG/2.5MG), DAILY
     Route: 048
     Dates: start: 201902

REACTIONS (7)
  - Dry skin [Unknown]
  - Intentional product misuse [Unknown]
  - Asthenia [Unknown]
  - Off label use [Unknown]
  - Malaise [Unknown]
  - Rash [Unknown]
  - Irritability [Unknown]

NARRATIVE: CASE EVENT DATE: 201901
